FAERS Safety Report 7243315-4 (Version None)
Quarter: 2011Q1

REPORT INFORMATION
  Report Type: 
  Country: None (occurrence: None)
  Receive Date: 20110125
  Receipt Date: 20100406
  Transmission Date: 20110831
  Serious: No
  Sender: FDA-Public Use
  Company Number: US-BRISTOL-MYERS SQUIBB COMPANY-15050883

PATIENT

DRUGS (4)
  1. CISPLATIN [Suspect]
  2. FLUOROURACIL [Suspect]
  3. ERBITUX [Suspect]
  4. DOCETAXEL [Suspect]

REACTIONS (2)
  - PAIN [None]
  - JOINT SWELLING [None]
